FAERS Safety Report 7600601-3 (Version None)
Quarter: 2011Q3

REPORT INFORMATION
  Report Type: 
  Country: None (occurrence: None)
  Receive Date: 20110711
  Receipt Date: 20110705
  Transmission Date: 20111222
  Serious: Yes (Hospitalization)
  Sender: FDA-Public Use
  Company Number: DE-NAPPMUNDI-DEU-2011-0007534

PATIENT
  Sex: Male

DRUGS (25)
  1. SYMBICORT [Concomitant]
     Indication: CHRONIC OBSTRUCTIVE PULMONARY DISEASE
     Dosage: UNK, BID
     Route: 055
  2. DILTIAZEM RATIOPHARM [Concomitant]
     Indication: VASOCONSTRICTION
     Dosage: UNK, AM
     Route: 048
  3. LANTUS [Concomitant]
     Indication: DIABETES MELLITUS
     Dosage: 42 U/ML, NOCTE
     Route: 058
  4. MORPHIN HCL [Concomitant]
     Indication: BACK PAIN
     Dosage: UNK, BID
     Route: 048
  5. MICTONORM [Concomitant]
     Indication: MICTURITION DISORDER
     Dosage: UNK, AC LUNCH
     Route: 048
  6. ASPIRIN [Concomitant]
     Indication: HAEMODILUTION
     Dosage: 100 MG, AC LUNCH
     Route: 048
  7. FUROSEMID                          /00032601/ [Concomitant]
     Indication: FLUID RETENTION
     Dosage: 40 MG, AM
     Route: 048
  8. SPIRIVA [Concomitant]
     Indication: BRONCHIAL OBSTRUCTION
     Dosage: 3 UNIT, DAILY
     Route: 055
  9. SIMVASTATIN [Concomitant]
     Indication: PROPHYLAXIS
     Dosage: 40 MG, NOCTE
     Route: 048
  10. LORAZEPAM [Concomitant]
     Indication: ANXIOLYTIC THERAPY
     Dosage: 0.5 MG, QID
     Route: 048
  11. LYRICA [Concomitant]
     Indication: PAIN
     Dosage: 350 MG, DAILY
     Route: 048
  12. SIMVASTATIN [Concomitant]
     Indication: LIPIDS
  13. ACC                                /00082801/ [Concomitant]
     Indication: CHRONIC OBSTRUCTIVE PULMONARY DISEASE
     Dosage: UNK, AM
     Route: 048
  14. RAMIPRIL DURA [Concomitant]
     Indication: BLOOD PRESSURE
  15. SALBUHEXAL                         /00139501/ [Concomitant]
     Indication: DYSPNOEA
     Dosage: UNK, PRN
     Route: 055
  16. TORSEMIDE [Concomitant]
     Indication: BLOOD PRESSURE
     Dosage: 30 MG, DAILY
     Route: 048
  17. MOXODURA [Concomitant]
     Indication: CARDIAC DISORDER
     Dosage: 0.3 MG, BID
     Route: 048
  18. NORSPAN 5 UG/H [Suspect]
     Indication: PAIN
     Dosage: 5 MCG, Q1H
     Route: 062
     Dates: start: 20110601, end: 20110622
  19. HUMALOG [Concomitant]
     Indication: DIABETES MELLITUS
     Dosage: 57 U/ML, DAILY
     Route: 058
  20. MORPHIN HCL [Concomitant]
     Indication: ARTHRALGIA
  21. SPIRONOLACTONE [Concomitant]
     Indication: FLUID RETENTION
     Dosage: 25 MG, AM
     Route: 048
  22. METAMIZOL                          /06276702/ [Concomitant]
     Indication: PAIN
     Dosage: 250 MG, QID
     Route: 048
  23. MOXODURA [Concomitant]
     Indication: BLOOD PRESSURE
  24. RAMIPRIL DURA [Concomitant]
     Indication: CARDIAC DISORDER
     Dosage: 5 MG, AM
     Route: 048
  25. PLETAL [Concomitant]
     Indication: PROMOTION OF PERIPHERAL CIRCULATION
     Dosage: 100 MG, BID

REACTIONS (1)
  - HYPOPNOEA [None]
